FAERS Safety Report 10517746 (Version 2)
Quarter: 2014Q4

REPORT INFORMATION
  Report Type: Report from Study
  Country: DE (occurrence: DE)
  Receive Date: 20141014
  Receipt Date: 20141021
  Transmission Date: 20150528
  Serious: Yes (Other)
  Sender: FDA-Public Use
  Company Number: PHHY2014DE122500

PATIENT
  Sex: Female
  Weight: 68 kg

DRUGS (6)
  1. IBUPROFEN. [Concomitant]
     Active Substance: IBUPROFEN
     Indication: PAIN
     Dosage: 400 MG, AT MAXIMUM TWICE DAILY
     Route: 065
  2. LDK378 [Suspect]
     Active Substance: CERITINIB
     Dosage: 750 MG, UNK
     Route: 048
     Dates: start: 20140625
  3. LDK378 [Suspect]
     Active Substance: CERITINIB
     Indication: NON-SMALL CELL LUNG CANCER METASTATIC
     Dosage: UNK UKN, UNK
     Route: 065
  4. LDK378 [Suspect]
     Active Substance: CERITINIB
     Indication: ANAPLASTIC LYMPHOMA KINASE GENE MUTATION
     Dosage: UNK UKN, UNK
     Route: 065
  5. LDK378 [Suspect]
     Active Substance: CERITINIB
     Dosage: UNK UKN, UNK
     Route: 065
  6. LDK378 [Suspect]
     Active Substance: CERITINIB
     Dosage: 450 MG, UNK
     Route: 048
     Dates: start: 20140801, end: 20140813

REACTIONS (6)
  - Aspartate aminotransferase increased [Unknown]
  - Blood alkaline phosphatase increased [Unknown]
  - Gamma-glutamyltransferase increased [Recovering/Resolving]
  - Tumour marker increased [Recovering/Resolving]
  - Neoplasm progression [Unknown]
  - Alanine aminotransferase increased [Unknown]
